FAERS Safety Report 18544848 (Version 14)
Quarter: 2022Q2

REPORT INFORMATION
  Report Type: Spontaneous
  Country: US (occurrence: US)
  Receive Date: 20201125
  Receipt Date: 20220406
  Transmission Date: 20220720
  Serious: Yes (Other)
  Sender: FDA-Public Use
  Company Number: US-PFIZER INC-2020367909

PATIENT
  Age: 44 Year
  Sex: Male

DRUGS (1)
  1. GENOTROPIN [Suspect]
     Active Substance: SOMATROPIN
     Dosage: 0.4 MG, DAILY
     Dates: start: 2015

REACTIONS (13)
  - Blindness unilateral [Unknown]
  - Pituitary tumour [Unknown]
  - Pituitary cyst [Unknown]
  - Amnesia [Unknown]
  - Visual impairment [Unknown]
  - Malaise [Unknown]
  - Fatigue [Unknown]
  - Confusional state [Unknown]
  - Product dose omission issue [Unknown]
  - Device use error [Unknown]
  - Device issue [Unknown]
  - Device breakage [Unknown]
  - Drug dose omission by device [Unknown]

NARRATIVE: CASE EVENT DATE: 20201118
